FAERS Safety Report 24038650 (Version 3)
Quarter: 2024Q3

REPORT INFORMATION
  Report Type: Report from Study
  Country: PT (occurrence: PT)
  Receive Date: 20240702
  Receipt Date: 20240712
  Transmission Date: 20241017
  Serious: Yes (Death, Hospitalization, Other)
  Sender: AMGEN
  Company Number: PT-AMGEN-PRTNI2024113982

PATIENT
  Age: 77 Year
  Sex: Female

DRUGS (3)
  1. CARFILZOMIB [Suspect]
     Active Substance: CARFILZOMIB
     Indication: Plasma cell myeloma
     Dosage: 60.4 MILLIGRAM
     Route: 042
     Dates: start: 20160201, end: 20240129
  2. CARFILZOMIB [Suspect]
     Active Substance: CARFILZOMIB
     Dosage: UNK
     Route: 042
  3. DEXAMETHASONE [Suspect]
     Active Substance: DEXAMETHASONE
     Indication: Plasma cell myeloma
     Dosage: UNK
     Route: 065
     Dates: start: 20160201

REACTIONS (2)
  - Respiratory tract infection [Fatal]
  - Pneumonia [Fatal]

NARRATIVE: CASE EVENT DATE: 20240301
